FAERS Safety Report 12545413 (Version 1)
Quarter: 2016Q3

REPORT INFORMATION
  Report Type: Spontaneous
  Country: GB (occurrence: GB)
  Receive Date: 20160711
  Receipt Date: 20160711
  Transmission Date: 20161109
  Serious: Yes (Hospitalization, Other)
  Sender: FDA-Public Use
  Company Number: GB-PFIZER INC-2016333821

PATIENT
  Age: 15 Year
  Sex: Female
  Weight: 50.8 kg

DRUGS (1)
  1. SERTRALINE HCL [Suspect]
     Active Substance: SERTRALINE HYDROCHLORIDE
     Indication: ANXIETY DISORDER
     Dosage: 50-100MG, UNK
     Route: 048
     Dates: start: 20120308

REACTIONS (3)
  - Serotonin syndrome [Not Recovered/Not Resolved]
  - Drug cross-reactivity [Not Recovered/Not Resolved]
  - Tic [Not Recovered/Not Resolved]

NARRATIVE: CASE EVENT DATE: 20120308
